FAERS Safety Report 5533094-0 (Version None)
Quarter: 2007Q4

REPORT INFORMATION
  Report Type: 
  Country: None (occurrence: None)
  Receive Date: 20071204
  Receipt Date: 20071129
  Transmission Date: 20080405
  Serious: Yes (Death)
  Sender: FDA-Public Use
  Company Number: IT-BRISTOL-MYERS SQUIBB COMPANY-13998026

PATIENT
  Age: 73 Year
  Sex: Male

DRUGS (3)
  1. SPRYCEL [Suspect]
     Indication: CHRONIC MYELOID LEUKAEMIA
     Route: 048
     Dates: start: 20070822, end: 20071121
  2. CYTARABINE [Concomitant]
     Dosage: NOV 19,20 AND 22,2007
     Route: 042
     Dates: start: 20071119, end: 20071122
  3. PURINETHOL [Concomitant]
     Dosage: 2 DOSAGE FORM- 2TABS
     Dates: start: 20071121

REACTIONS (3)
  - DYSPNOEA [None]
  - NO THERAPEUTIC RESPONSE [None]
  - PLEURAL EFFUSION [None]
